FAERS Safety Report 7985868-4 (Version None)
Quarter: 2011Q4

REPORT INFORMATION
  Report Type: 
  Country: None (occurrence: None)
  Receive Date: 20111214
  Receipt Date: 20111209
  Transmission Date: 20120403
  Serious: Yes (Hospitalization, Other)
  Sender: FDA-Public Use
  Company Number: 2009SP021070

PATIENT
  Age: 27 Year
  Sex: Female
  Weight: 86.637 kg

DRUGS (3)
  1. AMITRIPTYLINE [Concomitant]
  2. NEURONTIN [Concomitant]
  3. NUVARING [Suspect]
     Indication: CONTRACEPTION
     Dates: start: 20050525, end: 20060501

REACTIONS (26)
  - ANXIETY [None]
  - IMMINENT ABORTION [None]
  - DEEP VEIN THROMBOSIS [None]
  - PAIN [None]
  - PERIPHERAL ARTERIAL OCCLUSIVE DISEASE [None]
  - ANAEMIA [None]
  - CHOLELITHIASIS [None]
  - CHOLECYSTITIS [None]
  - HEADACHE [None]
  - HYPOAESTHESIA [None]
  - ACTIVITIES OF DAILY LIVING IMPAIRED [None]
  - ACUTE MYOCARDIAL INFARCTION [None]
  - MATERNAL EXPOSURE DURING PREGNANCY [None]
  - EUSTACHIAN TUBE DYSFUNCTION [None]
  - PREGNANCY [None]
  - VAGINAL DISCHARGE [None]
  - HYPERCOAGULATION [None]
  - ECTOPIC PREGNANCY [None]
  - DEVICE COMPONENT ISSUE [None]
  - OROPHARYNGEAL PAIN [None]
  - ABORTION SPONTANEOUS [None]
  - MENTAL DISORDER [None]
  - RETAINED PLACENTA OR MEMBRANES [None]
  - SINUS TACHYCARDIA [None]
  - DEATH NEONATAL [None]
  - VULVOVAGINAL PRURITUS [None]
